FAERS Safety Report 8502642 (Version 3)
Quarter: 2013Q4

REPORT INFORMATION
  Report Type: Spontaneous
  Country: US (occurrence: US)
  Receive Date: 20120410
  Receipt Date: 20131002
  Transmission Date: 20140711
  Serious: Yes (Other)
  Sender: FDA-Public Use
  Company Number: US-PFIZER INC-2012087042

PATIENT
  Sex: Female

DRUGS (1)
  1. LIPITOR [Suspect]
     Dosage: UNK

REACTIONS (5)
  - Diabetes mellitus [Unknown]
  - Cardiac disorder [Unknown]
  - Cardiac disorder [Unknown]
  - Malaise [Unknown]
  - Hearing impaired [Unknown]
